FAERS Safety Report 16651033 (Version 3)
Quarter: 2022Q1

REPORT INFORMATION
  Report Type: Spontaneous
  Country: CA (occurrence: CA)
  Receive Date: 20190731
  Receipt Date: 20220308
  Transmission Date: 20220423
  Serious: Yes (Hospitalization, Other)
  Sender: FDA-Public Use
  Company Number: CA-AUROBINDO-AUR-APL-2019-043510

PATIENT
  Age: 45 Year

DRUGS (6)
  1. TOPIRAMATE [Interacting]
     Active Substance: TOPIRAMATE
     Indication: Seizure
     Dosage: 200 MILLIGRAM, TWO TIMES A DAY
     Route: 048
  2. KEPPRA [Interacting]
     Active Substance: LEVETIRACETAM
     Indication: Seizure
     Dosage: 1500 MILLIGRAM, TWO TIMES A DAY
     Route: 048
  3. CLONAZEPAM [Interacting]
     Active Substance: CLONAZEPAM
     Indication: Seizure
     Dosage: 1 MILLIGRAM, TWO TIMES A DAY
     Route: 048
  4. PHENYTOIN [Interacting]
     Active Substance: PHENYTOIN
     Indication: Seizure
     Dosage: UNK
     Route: 042
  5. VALPROIC ACID [Interacting]
     Active Substance: VALPROIC ACID
     Indication: Seizure
     Dosage: UNK
     Route: 048
  6. VALPROIC ACID [Interacting]
     Active Substance: VALPROIC ACID
     Dosage: 750 MILLIGRAM, 3 TIMES A DAY
     Route: 048

REACTIONS (6)
  - Generalised tonic-clonic seizure [Recovered/Resolved]
  - Toxic encephalopathy [Recovered/Resolved]
  - Pneumonia [Recovered/Resolved]
  - Pneumonia aspiration [Recovered/Resolved]
  - Encephalopathy [Recovered/Resolved]
  - Drug interaction [Recovered/Resolved]
